FAERS Safety Report 6891981-5 (Version None)
Quarter: 2010Q3

REPORT INFORMATION
  Report Type: 
  Country: None (occurrence: None)
  Receive Date: 20100731
  Receipt Date: 20071210
  Transmission Date: 20110219
  Serious: No
  Sender: FDA-Public Use
  Company Number: US-PFIZER INC-2007104290

PATIENT
  Sex: Female
  Weight: 64.545 kg

DRUGS (6)
  1. NEURONTIN [Suspect]
     Indication: NEURALGIA
     Dates: start: 20010101
  2. NEURONTIN [Suspect]
     Indication: BACK PAIN
  3. GABAPENTIN [Suspect]
     Indication: NEURALGIA
     Dates: start: 20070901
  4. GABAPENTIN [Suspect]
     Indication: BACK PAIN
  5. CELEBREX [Concomitant]
     Indication: ARTHRITIS
  6. VITAMINS [Concomitant]

REACTIONS (1)
  - VISION BLURRED [None]
